FAERS Safety Report 6176858-5 (Version None)
Quarter: 2009Q2

REPORT INFORMATION
  Report Type: 
  Country: None (occurrence: None)
  Receive Date: 20090501
  Receipt Date: 20081118
  Transmission Date: 20091009
  Serious: Yes (Other)
  Sender: FDA-Public Use
  Company Number: FR-ALEXION-A200800277

PATIENT

DRUGS (13)
  1. SOLIRIS [Suspect]
     Indication: PAROXYSMAL NOCTURNAL HAEMOGLOBINURIA
     Dosage: 600 MG, Q WEEK
     Route: 042
     Dates: start: 20080215, end: 20080307
  2. SOLIRIS [Suspect]
     Dosage: 900 MG, Q2 WEEKS
     Route: 042
     Dates: start: 20080314, end: 20080718
  3. CYCLOSPORINE [Concomitant]
     Indication: APLASTIC ANAEMIA
     Route: 048
     Dates: start: 20020701, end: 20080801
  4. CYCLOSPORINE [Concomitant]
     Indication: PAROXYSMAL NOCTURNAL HAEMOGLOBINURIA
  5. ORACILLINE /00001801/ [Concomitant]
     Dosage: 1 MIU, BID
     Route: 048
     Dates: start: 20080523
  6. PENTACARINAT [Concomitant]
     Route: 048
     Dates: start: 20080718
  7. ZELITREX /01269701/ [Concomitant]
     Route: 048
     Dates: start: 20080718
  8. SPECIAFOLDINE [Concomitant]
     Route: 048
     Dates: start: 20080801
  9. CORTANCYL [Concomitant]
     Indication: APLASTIC ANAEMIA
     Dosage: 20 MG, UNK
     Route: 048
     Dates: start: 20080801, end: 20080918
  10. CORTANCYL [Concomitant]
     Dosage: 60 MG, QD
     Route: 048
     Dates: start: 20080918
  11. BELARA [Concomitant]
     Indication: CONTRACEPTION
     Dosage: UNK, UNK
     Route: 048
     Dates: start: 20050101, end: 20080601
  12. TEGELINE [Concomitant]
     Indication: APLASTIC ANAEMIA
     Route: 042
     Dates: start: 20080917, end: 20080918
  13. GRANOCYTE [Concomitant]
     Dates: start: 20080901

REACTIONS (3)
  - APLASTIC ANAEMIA [None]
  - CHOLELITHIASIS [None]
  - TWIN PREGNANCY [None]
